FAERS Safety Report 10662812 (Version 1)
Quarter: 2014Q4

REPORT INFORMATION
  Report Type: Spontaneous
  Country: FR (occurrence: FR)
  Receive Date: 20141218
  Receipt Date: 20141218
  Transmission Date: 20150529
  Serious: Yes (Other)
  Sender: FDA-Public Use
  Company Number: FR-WATSON-2014-26858

PATIENT
  Age: 60 Year
  Sex: Male

DRUGS (5)
  1. BACLOFEN (UNKNOWN) [Interacting]
     Active Substance: BACLOFEN
     Dosage: 220 MG, DAILY
     Route: 065
  2. BACLOFEN (UNKNOWN) [Suspect]
     Active Substance: BACLOFEN
     Indication: ALCOHOL ABUSE
     Dosage: 250 MG, DAILY
     Route: 065
  3. BACLOFEN (UNKNOWN) [Interacting]
     Active Substance: BACLOFEN
     Dosage: 240 MG, DAILY
     Route: 065
  4. LITHIUM CARBONATE (UNKNOWN) [Suspect]
     Active Substance: LITHIUM CARBONATE
     Indication: CLUSTER HEADACHE
     Dosage: 250 MG, DAILY
     Route: 065
  5. ALCOHOL. [Interacting]
     Active Substance: ALCOHOL
     Indication: ALCOHOL ABUSE
     Dosage: UNK
     Route: 065

REACTIONS (3)
  - Off label use [Unknown]
  - Oedema peripheral [Recovered/Resolved]
  - Alcohol interaction [Recovered/Resolved]
